FAERS Safety Report 22318885 (Version 1)
Quarter: 2023Q2

REPORT INFORMATION
  Report Type: Spontaneous
  Country: US (occurrence: US)
  Receive Date: 20230515
  Receipt Date: 20230515
  Transmission Date: 20230722
  Serious: No
  Sender: FDA-Public Use
  Company Number: US-STRIDES ARCOLAB LIMITED-2022M1049380

PATIENT
  Age: 46 Year
  Sex: Female

DRUGS (7)
  1. FINASTERIDE [Suspect]
     Active Substance: FINASTERIDE
     Indication: Lichen planopilaris
     Dosage: 5 MILLIGRAM, QD
     Route: 048
  2. CLOBETASOL [Suspect]
     Active Substance: CLOBETASOL
     Indication: Lichen planopilaris
     Dosage: UNK UNK, BID
     Route: 061
  3. KETOCONAZOLE [Suspect]
     Active Substance: KETOCONAZOLE
     Indication: Lichen planopilaris
     Dosage: UNK, BIWEEKLY; SHAMPOO (TWICE WEEKLY)
     Route: 061
  4. DOXYCYCLINE HYCLATE [Suspect]
     Active Substance: DOXYCYCLINE HYCLATE
     Indication: Lichen planopilaris
     Dosage: 50 MILLIGRAM, BID
     Route: 048
  5. TRIAMCINOLONE [Suspect]
     Active Substance: TRIAMCINOLONE
     Indication: Lichen planopilaris
     Dosage: UNK; TRIAMCINOLONE ACETONIDE (10 MG/CC X 2 CC)
     Route: 026
  6. MINOXIDIL [Suspect]
     Active Substance: MINOXIDIL
     Indication: Lichen planopilaris
     Dosage: UNK UNK, BID
     Route: 061
  7. SYNTHROID [Concomitant]
     Active Substance: LEVOTHYROXINE SODIUM
     Indication: Hypothyroidism
     Dosage: 100 MICROGRAM, QD
     Route: 065

REACTIONS (1)
  - Drug ineffective [Unknown]
